FAERS Safety Report 14615602 (Version 2)
Quarter: 2018Q1

REPORT INFORMATION
  Report Type: Report from Study
  Country: US (occurrence: US)
  Receive Date: 20180309
  Receipt Date: 20180312
  Transmission Date: 20180509
  Serious: Yes (Other)
  Sender: FDA-Public Use
  Company Number: US-UCBSA-2017028010

PATIENT
  Age: 4 Year
  Sex: Female

DRUGS (5)
  1. VITAMIN B6 [Suspect]
     Active Substance: PYRIDOXINE HYDROCHLORIDE
     Indication: PRODUCT USED FOR UNKNOWN INDICATION
     Dosage: 25 MG, 2X/DAY (BID)
  2. LEVETIRACETAM. [Suspect]
     Active Substance: LEVETIRACETAM
     Dosage: DOSE INCREASE
  3. VITAMIN B6 [Suspect]
     Active Substance: PYRIDOXINE HYDROCHLORIDE
     Dosage: 50 MG, 2X/DAY (BID)
  4. LEVETIRACETAM. [Suspect]
     Active Substance: LEVETIRACETAM
     Indication: PRODUCT USED FOR UNKNOWN INDICATION
     Dosage: UNK
  5. VIMPAT [Suspect]
     Active Substance: LACOSAMIDE
     Indication: PRODUCT USED FOR UNKNOWN INDICATION
     Dosage: UNK

REACTIONS (19)
  - Anger [Unknown]
  - Fatigue [Recovered/Resolved]
  - Disturbance in attention [Unknown]
  - Petit mal epilepsy [Unknown]
  - Personality change [Unknown]
  - Dizziness [Unknown]
  - Decreased appetite [Unknown]
  - Muscular weakness [Unknown]
  - Abdominal pain upper [Unknown]
  - Drug ineffective [Unknown]
  - Generalised tonic-clonic seizure [Unknown]
  - Balance disorder [Unknown]
  - Insomnia [Unknown]
  - Mood swings [Not Recovered/Not Resolved]
  - Feeling cold [Unknown]
  - Adverse reaction [Unknown]
  - Pain [Unknown]
  - Burning sensation [Unknown]
  - Diplopia [Unknown]
